FAERS Safety Report 7211234-5 (Version None)
Quarter: 2010Q4

REPORT INFORMATION
  Report Type: 
  Country: None (occurrence: None)
  Receive Date: 20101229
  Receipt Date: 20101213
  Transmission Date: 20110411
  Serious: Yes (Other)
  Sender: FDA-Public Use
  Company Number: 2010AP002652

PATIENT
  Age: 68 Year
  Sex: Female

DRUGS (9)
  1. AMLODIPINE BESYLATE [Suspect]
     Indication: HYPERTENSION
  2. RAMIPRIL [Suspect]
     Indication: HYPERTENSION
  3. SOTALOL HYDROCHLORIDE [Suspect]
     Indication: HYPERTENSION
  4. FUROSEMIDE [Suspect]
     Indication: HYPERTENSION
  5. ACETYLSALICYLIC ACID [Concomitant]
  6. GLICLAZIDE [Concomitant]
  7. METFORMIN HCL [Concomitant]
  8. PRAVASTATIN [Concomitant]
  9. GABAPENTIN [Concomitant]

REACTIONS (8)
  - AREFLEXIA [None]
  - CEREBRAL HYPOPERFUSION [None]
  - CEREBRAL INFARCTION [None]
  - CEREBRAL ISCHAEMIA [None]
  - DYSKINESIA [None]
  - PARTIAL SEIZURES [None]
  - SENSORY DISTURBANCE [None]
  - TRANSIENT ISCHAEMIC ATTACK [None]
